FAERS Safety Report 5704918-9 (Version None)
Quarter: 2008Q2

REPORT INFORMATION
  Report Type: 
  Country: None (occurrence: None)
  Receive Date: 20080414
  Receipt Date: 20080407
  Transmission Date: 20081010
  Serious: Yes (Hospitalization)
  Sender: FDA-Public Use
  Company Number: US-BOEHRINGER INGELHEIM GMBH, GERMANY-2008-BP-04315BP

PATIENT
  Age: 90 Year
  Sex: Male
  Weight: 53 kg

DRUGS (6)
  1. FLOMAX [Suspect]
     Indication: URINARY TRACT DISORDER
     Route: 048
  2. ASPIRIN [Concomitant]
     Route: 048
  3. CALCIUM WITH VITAMIN D [Concomitant]
     Route: 048
  4. MULTIVIT [Concomitant]
     Route: 048
  5. LOVASTATIN [Concomitant]
     Route: 048
  6. VIT C [Concomitant]
     Route: 048

REACTIONS (1)
  - AORTIC STENOSIS [None]
